FAERS Safety Report 19359492 (Version 2)
Quarter: 2021Q2

REPORT INFORMATION
  Report Type: Spontaneous
  Country: FR (occurrence: FR)
  Receive Date: 20210602
  Receipt Date: 20210603
  Transmission Date: 20210717
  Serious: Yes (Hospitalization)
  Sender: FDA-Public Use
  Company Number: FR-ACCORD-226920

PATIENT
  Age: 49 Year
  Sex: Female

DRUGS (3)
  1. METHOTREXATE. [Suspect]
     Active Substance: METHOTREXATE
     Indication: SARCOIDOSIS
     Route: 048
     Dates: start: 201909, end: 20210223
  2. CORTANCYL [Suspect]
     Active Substance: PREDNISONE
     Indication: SARCOIDOSIS
     Route: 048
     Dates: start: 201909
  3. FOLIC ACID. [Suspect]
     Active Substance: FOLIC ACID
     Indication: BLOOD DISORDER PROPHYLAXIS
     Route: 048
     Dates: start: 201909

REACTIONS (2)
  - Hypersensitivity pneumonitis [Not Recovered/Not Resolved]
  - Off label use [Unknown]

NARRATIVE: CASE EVENT DATE: 20210209
